FAERS Safety Report 6548996-6 (Version None)
Quarter: 2010Q1

REPORT INFORMATION
  Report Type: 
  Country: None (occurrence: None)
  Receive Date: 20100125
  Receipt Date: 20100114
  Transmission Date: 20100710
  Serious: Yes (Other)
  Sender: FDA-Public Use
  Company Number: ES-JNJFOC-20090105118

PATIENT
  Age: 64 Year
  Sex: Female
  Weight: 64 kg

DRUGS (11)
  1. DOXORUBICIN HCL [Suspect]
     Indication: BREAST CANCER
     Route: 042
  2. CYCLOPHOSPHAMIDE [Suspect]
     Indication: BREAST CANCER
     Route: 042
  3. LANTUS [Concomitant]
     Indication: DIABETES MELLITUS
     Route: 030
  4. ENALAPRIL MALEATE [Concomitant]
     Indication: HYPERTENSION
     Route: 048
  5. FUROSEMIDE [Concomitant]
     Indication: DIURETIC THERAPY
     Route: 048
  6. RISPERDAL [Concomitant]
     Indication: PSYCHOTIC DISORDER
     Route: 048
  7. CLEXANE [Concomitant]
     Indication: THROMBOSIS PROPHYLAXIS
     Route: 030
  8. GLICLAZIDE [Concomitant]
     Indication: TYPE 2 DIABETES MELLITUS
     Route: 048
  9. SIMVASTATIN [Concomitant]
     Indication: HYPERCHOLESTEROLAEMIA
     Route: 048
  10. BETAHISTINE [Concomitant]
     Indication: VERTIGO
     Route: 048
  11. METFORMIN HCL [Concomitant]
     Indication: DIABETES MELLITUS
     Route: 048

REACTIONS (1)
  - PARTIAL SEIZURES [None]
